FAERS Safety Report 16087052 (Version 2)
Quarter: 2019Q4

REPORT INFORMATION
  Report Type: Report from Study
  Country: None (occurrence: CA)
  Receive Date: 20190319
  Receipt Date: 20191204
  Transmission Date: 20200122
  Serious: Yes (Other)
  Sender: FDA-Public Use
  Company Number: CA-ABBVIE-18K-028-2576899-00

PATIENT
  Sex: Male

DRUGS (1)
  1. HUMIRA [Suspect]
     Active Substance: ADALIMUMAB
     Indication: CROHN^S DISEASE
     Route: 058
     Dates: start: 20180802

REACTIONS (11)
  - Fistula [Unknown]
  - Defaecation urgency [Unknown]
  - Incontinence [Not Recovered/Not Resolved]
  - Weight increased [Not Recovered/Not Resolved]
  - Anastomotic stenosis [Unknown]
  - Colonoscopy abnormal [Unknown]
  - Crohn^s disease [Not Recovered/Not Resolved]
  - Gastrointestinal oedema [Unknown]
  - Small intestinal stenosis [Unknown]
  - Faecal calprotectin abnormal [Unknown]
  - Abdominal discomfort [Not Recovered/Not Resolved]

NARRATIVE: CASE EVENT DATE: 2018
